FAERS Safety Report 5589303-5 (Version None)
Quarter: 2008Q1

REPORT INFORMATION
  Report Type: 
  Country: None (occurrence: None)
  Receive Date: 20080109
  Receipt Date: 20071228
  Transmission Date: 20080703
  Serious: Yes (Other)
  Sender: FDA-Public Use
  Company Number: 8028874

PATIENT
  Sex: Female

DRUGS (3)
  1. XUSAL [Suspect]
     Dosage: 1 DF 1/D
  2. PREDNISOLONE [Concomitant]
  3. ANTIBIOTIC [Concomitant]

REACTIONS (2)
  - MEDICATION RESIDUE [None]
  - ROAD TRAFFIC ACCIDENT [None]
